FAERS Safety Report 13739426 (Version 1)
Quarter: 2017Q3

REPORT INFORMATION
  Report Type: Other
  Country: None (occurrence: US)
  Receive Date: 20170710
  Receipt Date: 20170710
  Transmission Date: 20171127
  Serious: Yes (Hospitalization)
  Sender: FDA-Public Use
  Company Number: US-GUTHY-RENKER LLC-2023168

PATIENT
  Age: 30 Year
  Sex: Female

DRUGS (6)
  1. PROACTIV PLUS COMPLEXION PERFECTING HYDRATOR [Suspect]
     Active Substance: SALICYLIC ACID
     Route: 061
     Dates: start: 20151101, end: 20160219
  2. PA + MARK CORRECTING PADS [Suspect]
     Active Substance: GLYCOLIC ACID\SALICYLIC ACID
     Route: 061
     Dates: start: 20151101, end: 20160219
  3. BIOTIN [Concomitant]
     Active Substance: BIOTIN
  4. UNDISCLOSED ANTIBIOTICS [Concomitant]
  5. PROACTIVPLUS SKIN SMOOTHING EXFOLIATOR [Suspect]
     Active Substance: BENZOYL PEROXIDE
     Indication: ACNE
     Route: 061
     Dates: start: 20151101, end: 20160219
  6. PROACTIV PLUS PORE TARGETING TREATMENT [Suspect]
     Active Substance: BENZOYL PEROXIDE
     Route: 061
     Dates: start: 20151101, end: 20160219

REACTIONS (3)
  - Colitis [Recovered/Resolved]
  - Drug interaction [None]
  - Rash [None]

NARRATIVE: CASE EVENT DATE: 20160219
